FAERS Safety Report 6914766-X (Version None)
Quarter: 2010Q3

REPORT INFORMATION
  Report Type: 
  Country: None (occurrence: None)
  Receive Date: 20100804
  Receipt Date: 20100726
  Transmission Date: 20110219
  Serious: Yes (Hospitalization, Other)
  Sender: FDA-Public Use
  Company Number: 2010US002692

PATIENT
  Age: 38 Year
  Sex: Male
  Weight: 77 kg

DRUGS (4)
  1. PROGRAF [Suspect]
     Indication: RENAL TRANSPLANT
     Dosage: 3 MG, BID, ORAL; 1.5 MG, BID, ORAL
     Route: 048
     Dates: start: 19980402
  2. PREDNISONE [Concomitant]
  3. ZOCOR [Concomitant]
  4. CATAPRES [Concomitant]

REACTIONS (15)
  - ACIDOSIS [None]
  - ANAEMIA [None]
  - ANAEMIA OF CHRONIC DISEASE [None]
  - CHRONIC ALLOGRAFT NEPHROPATHY [None]
  - DIALYSIS [None]
  - GASTROINTESTINAL HAEMORRHAGE [None]
  - GLUCOSE TOLERANCE IMPAIRED [None]
  - HYPERLIPIDAEMIA [None]
  - HYPERTENSION [None]
  - HYPOPHOSPHATAEMIA [None]
  - INGUINAL HERNIA [None]
  - KIDNEY TRANSPLANT REJECTION [None]
  - NEPHROGENIC ANAEMIA [None]
  - RENAL FAILURE CHRONIC [None]
  - THROMBOCYTOPENIA [None]
